FAERS Safety Report 8988868 (Version 1)
Quarter: 2012Q4

REPORT INFORMATION
  Report Type: Spontaneous
  Country: US (occurrence: None)
  Receive Date: 20121220
  Receipt Date: 20121220
  Transmission Date: 20130627
  Serious: Yes (Hospitalization)
  Sender: FDA-Public Use
  Company Number: USA/USA/12/0027109

PATIENT
  Age: 25 Year
  Sex: Male
  Weight: 68.04 kg

DRUGS (2)
  1. FEXOFENADINE HCL [Suspect]
     Indication: ALLERGY
  2. INSULIN [Concomitant]
     Dates: start: 20121127, end: 20121130

REACTIONS (3)
  - Hypersensitivity [None]
  - Bronchitis [None]
  - Influenza [None]
